FAERS Safety Report 14577860 (Version 1)
Quarter: 2018Q1

REPORT INFORMATION
  Report Type: Spontaneous
  Country: NG (occurrence: NG)
  Receive Date: 20180227
  Receipt Date: 20180227
  Transmission Date: 20180509
  Serious: Yes (Hospitalization, Other)
  Sender: FDA-Public Use
  Company Number: NG-GLAXOSMITHKLINE-NG2018GSK031425

PATIENT
  Age: 25 Year
  Sex: Female

DRUGS (1)
  1. SERETIDE [Suspect]
     Active Substance: FLUTICASONE PROPIONATE\SALMETEROL XINAFOATE
     Indication: ASTHMA
     Dosage: 50 UG, UNK
     Route: 055
     Dates: end: 201707

REACTIONS (3)
  - Therapy cessation [Unknown]
  - Asthmatic crisis [Unknown]
  - Asthma [Recovered/Resolved]
